FAERS Safety Report 5247705-0 (Version None)
Quarter: 2007Q1

REPORT INFORMATION
  Report Type: 
  Country: None (occurrence: None)
  Receive Date: 20070227
  Receipt Date: 20070219
  Transmission Date: 20070707
  Serious: Yes (Hospitalization)
  Sender: FDA-Public Use
  Company Number: IT-ELI_LILLY_AND_COMPANY-IT200702004625

PATIENT
  Age: 46 Year
  Sex: Male

DRUGS (1)
  1. TADALAFIL [Suspect]

REACTIONS (1)
  - HEPATITIS ACUTE [None]
